FAERS Safety Report 10564776 (Version 2)
Quarter: 2014Q4

REPORT INFORMATION
  Report Type: Spontaneous
  Country: US (occurrence: US)
  Receive Date: 20141105
  Receipt Date: 20141105
  Transmission Date: 20150529
  Serious: Yes (Other)
  Sender: FDA-Public Use
  Company Number: US-ROCHE-1465776

PATIENT
  Age: 43 Year
  Sex: Female
  Weight: 76.73 kg

DRUGS (1)
  1. ERIVEDGE [Suspect]
     Active Substance: VISMODEGIB
     Indication: BASAL CELL CARCINOMA
     Route: 048
     Dates: start: 20140818, end: 20140910

REACTIONS (9)
  - Dysgeusia [Unknown]
  - Alopecia [Unknown]
  - Diarrhoea [Unknown]
  - Headache [Unknown]
  - Aspartate aminotransferase increased [Recovering/Resolving]
  - Dyspepsia [Unknown]
  - Hepatitis [Recovering/Resolving]
  - Blood alkaline phosphatase increased [Recovering/Resolving]
  - Alanine aminotransferase increased [Recovering/Resolving]

NARRATIVE: CASE EVENT DATE: 20140910
